FAERS Safety Report 17718449 (Version 1)
Quarter: 2020Q2

REPORT INFORMATION
  Report Type: Spontaneous
  Country: IT (occurrence: IT)
  Receive Date: 20200428
  Receipt Date: 20200428
  Transmission Date: 20200714
  Serious: Yes (Other)
  Sender: FDA-Public Use
  Company Number: IT-MYLANLABS-2020M1041641

PATIENT
  Age: 96 Year
  Sex: Female

DRUGS (1)
  1. LORAZEPAM. [Suspect]
     Active Substance: LORAZEPAM
     Indication: DELIRIUM
     Dosage: 3.75 MILLIGRAM, QD
     Dates: start: 20200317, end: 20200318

REACTIONS (2)
  - Hypothermia [Unknown]
  - Sopor [Unknown]

NARRATIVE: CASE EVENT DATE: 20200318
